FAERS Safety Report 5232778-1 (Version None)
Quarter: 2007Q1

REPORT INFORMATION
  Report Type: 
  Country: None (occurrence: None)
  Receive Date: 20070206
  Receipt Date: 20070206
  Transmission Date: 20070707
  Serious: Yes (Life-Threatening, Hospitalization, Disabling)
  Sender: FDA-Public Use
  Company Number: None

PATIENT
  Age: 79 Year
  Weight: 92.1 kg

DRUGS (15)
  1. SOTALOL HCL [Suspect]
     Indication: VENTRICULAR EXTRASYSTOLES
     Dosage: 80MG BID PO
     Route: 048
     Dates: start: 20061031, end: 20061102
  2. SOTALOL HCL [Suspect]
     Indication: VENTRICULAR TACHYCARDIA
     Dosage: 80MG BID PO
     Route: 048
     Dates: start: 20061031, end: 20061102
  3. ALBUTEROL [Concomitant]
  4. ASPIRIN [Concomitant]
  5. CIMETIDINE HCL [Concomitant]
  6. DOCUSATE [Concomitant]
  7. DOXAZOSIN MESYLATE [Concomitant]
  8. FORMOTEROL FUMARATE [Concomitant]
  9. HEPARIN [Concomitant]
  10. IPRATROPIUM BROMIDE [Concomitant]
  11. LISINOPRIL [Concomitant]
  12. PAROXETINE HCL [Concomitant]
  13. POTASSIUM CHLORIDE [Concomitant]
  14. PREDNISONE [Concomitant]
  15. SOLTALOL [Concomitant]

REACTIONS (7)
  - CHRONIC OBSTRUCTIVE PULMONARY DISEASE [None]
  - CONDITION AGGRAVATED [None]
  - ELECTROCARDIOGRAM QT PROLONGED [None]
  - HAEMODIALYSIS [None]
  - HYPOTENSION [None]
  - RENAL TUBULAR NECROSIS [None]
  - SYNCOPE [None]
